FAERS Safety Report 7574417-0 (Version None)
Quarter: 2011Q2

REPORT INFORMATION
  Report Type: 
  Country: None (occurrence: None)
  Receive Date: 20110525
  Receipt Date: 20110222
  Transmission Date: 20111010
  Serious: No
  Sender: FDA-Public Use
  Company Number: 323817

PATIENT
  Age: 55 Year
  Sex: Female

DRUGS (3)
  1. VICTOZA [Suspect]
     Indication: TYPE 2 DIABETES MELLITUS
     Dosage: 1.2 MG, QD, SUBCUTANEOUS
     Route: 058
  2. METFORMIN FR (METFORMIN) [Concomitant]
  3. GLUCOTROL XL [Concomitant]

REACTIONS (1)
  - BLOOD GLUCOSE DECREASED [None]
